FAERS Safety Report 16942267 (Version 1)
Quarter: 2019Q4

REPORT INFORMATION
  Report Type: Spontaneous
  Country: AR (occurrence: AR)
  Receive Date: 20191021
  Receipt Date: 20191021
  Transmission Date: 20200122
  Serious: Yes (Death)
  Sender: FDA-Public Use
  Company Number: AR-NOVOPROD-690280

PATIENT
  Sex: Female

DRUGS (1)
  1. NOVOSEVEN RT [Suspect]
     Active Substance: COAGULATION FACTOR VIIA RECOMBINANT HUMAN
     Indication: ACQUIRED HAEMOPHILIA
     Dosage: 90 MCG /KG EVERY 3 HOURS X 12
     Route: 065
     Dates: start: 20191009, end: 20191009

REACTIONS (1)
  - Haemorrhage [Fatal]
